FAERS Safety Report 17306618 (Version 1)
Quarter: 2020Q1

REPORT INFORMATION
  Report Type: Spontaneous
  Country: US (occurrence: US)
  Receive Date: 20200123
  Receipt Date: 20200123
  Transmission Date: 20200409
  Serious: No
  Sender: FDA-Public Use
  Company Number: US-ABBVIE-19P-163-3013683-00

PATIENT
  Sex: Female

DRUGS (1)
  1. SKYRIZI [Suspect]
     Active Substance: RISANKIZUMAB-RZAA
     Indication: PSORIASIS
     Dosage: PATIENT RECEIVED WEEK 0 AND WEEK 4 DOSES, TWO INJECTIONS
     Route: 058

REACTIONS (2)
  - Musculoskeletal stiffness [Unknown]
  - Peripheral swelling [Recovering/Resolving]
